FAERS Safety Report 12480340 (Version 1)
Quarter: 2016Q2

REPORT INFORMATION
  Report Type: Spontaneous
  Country: US (occurrence: None)
  Receive Date: 20160617
  Receipt Date: 20160617
  Transmission Date: 20160815
  Serious: Yes (Other)
  Sender: FDA-Public Use
  Company Number: None

PATIENT
  Age: 25 Year
  Sex: Female
  Weight: 52.16 kg

DRUGS (3)
  1. TRETINION CREAM 0.05% [Concomitant]
  2. MINOCYCLINE 50 MG TABLETS, 50 MG PAR [Suspect]
     Active Substance: MINOCYCLINE\MINOCYCLINE HYDROCHLORIDE
     Indication: ACNE
     Route: 048
     Dates: start: 20160601, end: 20160613
  3. CLINDAMYCIN PHOSPHATE 1% [Concomitant]

REACTIONS (17)
  - Eating disorder [None]
  - Confusional state [None]
  - Asthenia [None]
  - Feeling abnormal [None]
  - Suicidal ideation [None]
  - Pollakiuria [None]
  - Dizziness [None]
  - Depression [None]
  - Panic attack [None]
  - Nausea [None]
  - Decreased appetite [None]
  - Body temperature fluctuation [None]
  - Oropharyngeal pain [None]
  - Tachyphrenia [None]
  - Quality of life decreased [None]
  - Anxiety [None]
  - Derealisation [None]

NARRATIVE: CASE EVENT DATE: 20160605
